FAERS Safety Report 7141996-7 (Version None)
Quarter: 2010Q4

REPORT INFORMATION
  Report Type: 
  Country: None (occurrence: None)
  Receive Date: 20101207
  Receipt Date: 20101202
  Transmission Date: 20110411
  Serious: Yes (Other)
  Sender: FDA-Public Use
  Company Number: A0863577A

PATIENT
  Sex: Female

DRUGS (8)
  1. TYKERB [Suspect]
     Dosage: 1250MG PER DAY
     Route: 048
     Dates: start: 20100514
  2. XELODA [Suspect]
     Route: 065
  3. METFORMIN [Concomitant]
     Route: 065
  4. PREVACID [Concomitant]
     Route: 065
  5. AMITRIPTYLINE [Concomitant]
     Route: 065
  6. POTASSIUM CHLORIDE [Concomitant]
     Route: 065
  7. LIPITOR [Concomitant]
     Route: 065
  8. MULTI-VITAMIN [Concomitant]
     Route: 065

REACTIONS (5)
  - DIARRHOEA [None]
  - HAEMORRHAGE [None]
  - PARONYCHIA [None]
  - SKIN CHAPPED [None]
  - STOMATITIS [None]
